FAERS Safety Report 10744886 (Version 1)
Quarter: 2015Q1

REPORT INFORMATION
  Report Type: Spontaneous
  Country: GB (occurrence: GB)
  Receive Date: 20150128
  Receipt Date: 20150128
  Transmission Date: 20150721
  Serious: Yes (Hospitalization)
  Sender: FDA-Public Use
  Company Number: GB-ABBVIE-14P-167-1321694-00

PATIENT
  Age: 64 Year
  Sex: Female
  Weight: 49.3 kg

DRUGS (4)
  1. PROPANOLOL [Concomitant]
     Active Substance: PROPRANOLOL HYDROCHLORIDE
     Indication: BLEEDING VARICOSE VEIN
     Dosage: BD
     Route: 048
     Dates: start: 20141203
  2. CALOGEN EXTRA [Concomitant]
     Indication: MALNUTRITION
     Route: 048
     Dates: start: 20150108
  3. DUODOPA [Suspect]
     Active Substance: CARBIDOPA\LEVODOPA
     Indication: PARKINSON^S DISEASE
     Dosage: CONTINUOUS INFUSION FOR 24 HOURS-CONTINUOUS VIA ROUTE PEG
     Route: 050
     Dates: start: 20080616
  4. RIFAXIMIN [Concomitant]
     Active Substance: RIFAXIMIN
     Indication: ENCEPHALOPATHY
     Dosage: BD
     Route: 048
     Dates: start: 20141219

REACTIONS (7)
  - Blood urea increased [Unknown]
  - Stoma site haemorrhage [Recovered/Resolved]
  - White blood cell count increased [Unknown]
  - Blood alkaline phosphatase increased [Unknown]
  - Blood bilirubin increased [Unknown]
  - Blood creatinine decreased [Unknown]
  - Upper gastrointestinal haemorrhage [Recovered/Resolved]

NARRATIVE: CASE EVENT DATE: 20141202
